FAERS Safety Report 18546511 (Version 1)
Quarter: 2020Q4

REPORT INFORMATION
  Report Type: Spontaneous
  Country: US (occurrence: US)
  Receive Date: 20201125
  Receipt Date: 20201125
  Transmission Date: 20210114
  Serious: No
  Sender: FDA-Public Use
  Company Number: US-PFIZER INC-2020461740

PATIENT
  Sex: Female

DRUGS (1)
  1. ZALEPLON. [Suspect]
     Active Substance: ZALEPLON
     Dosage: UNK

REACTIONS (1)
  - Therapeutic product effect incomplete [Unknown]
